FAERS Safety Report 5934524-2 (Version None)
Quarter: 2008Q4

REPORT INFORMATION
  Report Type: 
  Country: None (occurrence: None)
  Receive Date: 20081029
  Receipt Date: 20081022
  Transmission Date: 20090506
  Serious: Yes (Hospitalization)
  Sender: FDA-Public Use
  Company Number: FR-WYE-G02120008

PATIENT
  Sex: Male
  Weight: 54 kg

DRUGS (8)
  1. TORISEL [Suspect]
     Indication: RENAL CANCER METASTATIC
     Dosage: 25 MG EVERY 1 CYC
     Route: 042
     Dates: start: 20080612, end: 20080717
  2. TORISEL [Suspect]
     Dosage: 25 MG EVERY 1 CYC
     Route: 042
     Dates: start: 20080807, end: 20080807
  3. CELECTOL [Concomitant]
     Indication: HYPERTENSION
     Route: 048
     Dates: start: 20070301
  4. DOLIPRANE [Concomitant]
     Indication: CANCER PAIN
     Route: 048
     Dates: start: 20030101
  5. DURAGESIC-100 [Concomitant]
     Indication: CANCER PAIN
     Route: 062
     Dates: start: 20080401
  6. MORPHINE [Concomitant]
     Indication: CANCER PAIN
     Dosage: 40 MG TOTAL DAILY
     Route: 048
     Dates: start: 20080401
  7. LERCAN [Concomitant]
     Indication: HYPERTENSION
     Route: 048
     Dates: start: 20070301
  8. LEXOMIL [Concomitant]
     Indication: ANXIETY
     Route: 048
     Dates: start: 20030101

REACTIONS (2)
  - DUODENAL ULCER [None]
  - PALMAR-PLANTAR ERYTHRODYSAESTHESIA SYNDROME [None]
